FAERS Safety Report 14104656 (Version 1)
Quarter: 2017Q4

REPORT INFORMATION
  Report Type: Spontaneous
  Country: US (occurrence: US)
  Receive Date: 20171018
  Receipt Date: 20171018
  Transmission Date: 20180321
  Serious: No
  Sender: FDA-Public Use
  Company Number: US-AMGEN-USASP2017129646

PATIENT
  Age: 75 Year
  Sex: Female

DRUGS (1)
  1. PROLIA [Suspect]
     Active Substance: DENOSUMAB
     Indication: PRODUCT USED FOR UNKNOWN INDICATION
     Dosage: UNK
     Route: 065
     Dates: end: 2017

REACTIONS (8)
  - Pain in extremity [Unknown]
  - Headache [Unknown]
  - Eye disorder [Unknown]
  - Hypoacusis [Not Recovered/Not Resolved]
  - Gait disturbance [Unknown]
  - Rash [Recovered/Resolved]
  - Oropharyngeal discomfort [Unknown]
  - Arthralgia [Unknown]

NARRATIVE: CASE EVENT DATE: 2017
